FAERS Safety Report 7545671-6 (Version None)
Quarter: 2011Q2

REPORT INFORMATION
  Report Type: 
  Country: None (occurrence: None)
  Receive Date: 20110614
  Receipt Date: 20110609
  Transmission Date: 20111010
  Serious: Yes (Death)
  Sender: FDA-Public Use
  Company Number: CO-BRISTOL-MYERS SQUIBB COMPANY-15817117

PATIENT
  Age: 52 Year

DRUGS (1)
  1. ORENCIA [Suspect]
     Dosage: NO OF DOSE:2

REACTIONS (1)
  - PNEUMONIA [None]
